FAERS Safety Report 25240661 (Version 2)
Quarter: 2025Q2

REPORT INFORMATION
  Report Type: Spontaneous
  Country: FR (occurrence: FR)
  Receive Date: 20250425
  Receipt Date: 20250519
  Transmission Date: 20250717
  Serious: Yes (Death)
  Sender: BIOVITRUM
  Company Number: FR-BIOVITRUM-2025-FR-005155

PATIENT
  Age: 8 Year
  Sex: Female

DRUGS (1)
  1. KINERET [Suspect]
     Active Substance: ANAKINRA
     Indication: Febrile infection-related epilepsy syndrome
     Route: 058
     Dates: start: 2024

REACTIONS (2)
  - Off label use [Recovered/Resolved]
  - Febrile infection-related epilepsy syndrome [Fatal]

NARRATIVE: CASE EVENT DATE: 20240101
